FAERS Safety Report 13651699 (Version 1)
Quarter: 2017Q2

REPORT INFORMATION
  Report Type: Spontaneous
  Country: US (occurrence: US)
  Receive Date: 20170614
  Receipt Date: 20170614
  Transmission Date: 20170830
  Serious: Yes (Hospitalization)
  Sender: FDA-Public Use
  Company Number: US-VALIDUS PHARMACEUTICALS LLC-US-2017VAL000895

PATIENT
  Age: 9 Year
  Sex: Male

DRUGS (1)
  1. CALCITRIOL. [Suspect]
     Active Substance: CALCITRIOL
     Indication: HEREDITARY HYPOPHOSPHATAEMIC RICKETS
     Dosage: 1 ?G, UNK
     Route: 065

REACTIONS (3)
  - Hyperparathyroidism [Recovered/Resolved]
  - Nephrocalcinosis [Not Recovered/Not Resolved]
  - Renal failure [Unknown]
